FAERS Safety Report 9133286 (Version 2)
Quarter: 2013Q1

REPORT INFORMATION
  Report Type: Spontaneous
  Country: JP (occurrence: JP)
  Receive Date: 20130301
  Receipt Date: 20130325
  Transmission Date: 20140127
  Serious: Yes (Hospitalization)
  Sender: FDA-Public Use
  Company Number: JP-B.I. PHARMACEUTICALS,INC./RIDGEFIELD-2013-BI-05402NB

PATIENT
  Age: 82 Year
  Sex: Male

DRUGS (8)
  1. TRAZENTA [Suspect]
     Indication: DIABETES MELLITUS
     Dosage: 5 MG
     Route: 048
     Dates: start: 20121012, end: 20130103
  2. OXYCONTIN [Suspect]
     Indication: PAIN
     Dosage: 10 MG
     Route: 048
     Dates: start: 20121109
  3. MAGNESIUM OXIDE [Concomitant]
     Indication: CONSTIPATION
     Route: 048
     Dates: start: 2012
  4. PLAVIX [Concomitant]
     Dosage: 75 MG
     Route: 048
  5. GASTER [Concomitant]
     Dosage: 10 MG
     Route: 048
  6. URINORM [Concomitant]
     Route: 048
  7. LOBU [Concomitant]
     Route: 048
  8. EQUA [Concomitant]
     Route: 048

REACTIONS (2)
  - Pancreatic carcinoma [Unknown]
  - Constipation [Unknown]
